FAERS Safety Report 16659598 (Version 1)
Quarter: 2019Q3

REPORT INFORMATION
  Report Type: Spontaneous
  Country: DE (occurrence: DE)
  Receive Date: 20190802
  Receipt Date: 20190802
  Transmission Date: 20191004
  Serious: Yes (Hospitalization, Other)
  Sender: FDA-Public Use
  Company Number: DE-AUROBINDO-AUR-APL-2019-045950

PATIENT

DRUGS (4)
  1. CITALOPRAM FILM-COATED TABLET [Suspect]
     Active Substance: CITALOPRAM HYDROBROMIDE
     Indication: PRODUCT USED FOR UNKNOWN INDICATION
     Dosage: 300 MILLIGRAM (300 MG (15 DOSAGE FORMS))
     Route: 048
     Dates: start: 20130429, end: 20130429
  2. SOLVEX [Suspect]
     Active Substance: BENZOIC ACID\CHLOROTHYMOL\SALICYLIC ACID\THYMOL OR BROMHEXINE HYDROCHLORIDE OR REBOXETINE MESYLATE
     Indication: PRODUCT USED FOR UNKNOWN INDICATION
     Dosage: 16 MILLIGRAM (4 DOSAGE FORMS OF 4 MG)
     Route: 048
     Dates: start: 20130429, end: 20130429
  3. AMITRIPTYLIN NEURAXPHARM [Suspect]
     Active Substance: AMITRIPTYLINE
     Indication: PRODUCT USED FOR UNKNOWN INDICATION
     Dosage: 1200 MILLIGRAM (30 ML 40 MG/ML SOLUTION)
     Route: 048
     Dates: start: 20130429, end: 20130429
  4. ALCOHOL. [Suspect]
     Active Substance: ALCOHOL
     Indication: PRODUCT USED FOR UNKNOWN INDICATION
     Dosage: UNK
     Route: 048
     Dates: start: 20130429, end: 20130429

REACTIONS (4)
  - Suicide attempt [Unknown]
  - Overdose [Unknown]
  - Coma [Unknown]
  - Areflexia [Unknown]

NARRATIVE: CASE EVENT DATE: 20130429
